FAERS Safety Report 15365063 (Version 2)
Quarter: 2018Q3

REPORT INFORMATION
  Report Type: Report from Study
  Country: DE (occurrence: DE)
  Receive Date: 20180910
  Receipt Date: 20180924
  Transmission Date: 20181010
  Serious: Yes (Other)
  Sender: FDA-Public Use
  Company Number: DE-ROCHE-2110206

PATIENT
  Age: 28 Year
  Sex: Female
  Weight: 62 kg

DRUGS (13)
  1. DEKRISTOL [Concomitant]
     Active Substance: CHOLECALCIFEROL
     Route: 065
  2. FAMPYRA [Concomitant]
     Active Substance: DALFAMPRIDINE
  3. OCREVUS [Suspect]
     Active Substance: OCRELIZUMAB
     Dosage: SECOND INFUSION
     Route: 042
     Dates: start: 20180329, end: 20180329
  4. TOLPERISONE [Concomitant]
     Active Substance: TOLPERISONE
  5. VENLAFAXIN [Concomitant]
     Active Substance: VENLAFAXINE HYDROCHLORIDE
     Route: 065
  6. OCREVUS [Suspect]
     Active Substance: OCRELIZUMAB
     Route: 042
     Dates: start: 20180906
  7. LAMOTRIGIN [Concomitant]
     Active Substance: LAMOTRIGINE
     Indication: EPILEPSY
     Dosage: 1?0?1
     Route: 065
  8. LAMOTRIGIN [Concomitant]
     Active Substance: LAMOTRIGINE
     Dosage: 175?0?200 MG
     Route: 065
  9. PROCORALAN [Concomitant]
     Active Substance: IVABRADINE
  10. GABAPENTIN. [Concomitant]
     Active Substance: GABAPENTIN
  11. OCREVUS [Suspect]
     Active Substance: OCRELIZUMAB
     Indication: RELAPSING-REMITTING MULTIPLE SCLEROSIS
     Route: 042
     Dates: start: 20180315, end: 20180315
  12. LAMOTRIGIN [Concomitant]
     Active Substance: LAMOTRIGINE
     Route: 046
  13. PANTOPRAZOL [Concomitant]
     Active Substance: PANTOPRAZOLE SODIUM
     Route: 065

REACTIONS (18)
  - Food craving [Recovered/Resolved]
  - Granulocyte count decreased [Recovered/Resolved]
  - Epilepsy [Unknown]
  - Middle insomnia [Not Recovered/Not Resolved]
  - Monocyte count increased [Recovered/Resolved]
  - Lymphopenia [Unknown]
  - Neutrophil count decreased [Recovered/Resolved]
  - Myelocyte present [Unknown]
  - Blast cells present [Unknown]
  - Fatigue [Recovered/Resolved]
  - Granulocyte count increased [Recovered/Resolved]
  - Fatigue [Recovered/Resolved]
  - Band neutrophil count decreased [Recovered/Resolved]
  - Eosinophil count increased [Recovered/Resolved]
  - Epilepsy [Recovered/Resolved]
  - Basophil count decreased [Recovered/Resolved]
  - Drug level fluctuating [Recovered/Resolved]
  - Food craving [Recovered/Resolved]

NARRATIVE: CASE EVENT DATE: 20180315
